FAERS Safety Report 10794394 (Version 3)
Quarter: 2015Q1

REPORT INFORMATION
  Report Type: Report from Study
  Country: TR (occurrence: TR)
  Receive Date: 20150213
  Receipt Date: 20150218
  Transmission Date: 20150721
  Serious: Yes (Other)
  Sender: FDA-Public Use
  Company Number: TR-EMD SERONO-7271329

PATIENT
  Sex: Female
  Weight: 65 kg

DRUGS (8)
  1. DOLOREX                            /00068902/ [Concomitant]
     Active Substance: UNSPECIFIED INGREDIENT
     Indication: ANALGESIC THERAPY
  2. LYRICA [Concomitant]
     Active Substance: PREGABALIN
     Indication: NEURALGIA
  3. NEXIUM [Concomitant]
     Active Substance: ESOMEPRAZOLE MAGNESIUM
     Indication: ULCER
  4. DEXKETOPROFEN [Concomitant]
     Active Substance: DEXKETOPROFEN
     Indication: ANALGESIC THERAPY
  5. REBIF [Suspect]
     Active Substance: INTERFERON BETA-1A
     Indication: MULTIPLE SCLEROSIS
     Dates: start: 200607
  6. CATAFLAM                           /00372302/ [Concomitant]
     Active Substance: DICLOFENAC POTASSIUM
     Indication: ANALGESIC THERAPY
  7. NAPROSYN [Concomitant]
     Active Substance: NAPROXEN
     Indication: PAIN
  8. ARVELES [Concomitant]
     Active Substance: DEXKETOPROFEN
     Indication: PAIN

REACTIONS (7)
  - Diabetes mellitus [Not Recovered/Not Resolved]
  - Injection site mass [Not Recovered/Not Resolved]
  - Blood cholesterol increased [Not Recovered/Not Resolved]
  - Injection site erythema [Not Recovered/Not Resolved]
  - Trigeminal neuralgia [Not Recovered/Not Resolved]
  - Injection site bruising [Not Recovered/Not Resolved]
  - Injection site pain [Not Recovered/Not Resolved]

NARRATIVE: CASE EVENT DATE: 2006
